FAERS Safety Report 6634516-4 (Version None)
Quarter: 2010Q1

REPORT INFORMATION
  Report Type: 
  Country: None (occurrence: None)
  Receive Date: 20100315
  Receipt Date: 20100305
  Transmission Date: 20100710
  Serious: Yes (Other)
  Sender: FDA-Public Use
  Company Number: B0637936A

PATIENT
  Sex: Male

DRUGS (3)
  1. BETNOVATE [Suspect]
     Route: 065
     Dates: start: 20070101
  2. PROCHLORPERAZINE [Concomitant]
     Indication: VERTIGO
  3. PHENERGAN HCL [Concomitant]

REACTIONS (2)
  - PUSTULAR PSORIASIS [None]
  - RASH PUSTULAR [None]
